FAERS Safety Report 8788115 (Version 2)
Quarter: 2015Q2

REPORT INFORMATION
  Report Type: Report from Study
  Country: US (occurrence: US)
  Receive Date: 20120914
  Receipt Date: 20150624
  Transmission Date: 20150821
  Serious: Yes (Death)
  Sender: FDA-Public Use
  Company Number: US-ROCHE-1127647

PATIENT
  Age: 67 Year
  Sex: Male

DRUGS (32)
  1. AVASTIN [Suspect]
     Active Substance: BEVACIZUMAB
     Route: 065
  2. ALOXI [Concomitant]
     Active Substance: PALONOSETRON HYDROCHLORIDE
     Route: 042
  3. DECADRON [Concomitant]
     Active Substance: DEXAMETHASONE
     Route: 065
  4. TAXOTERE [Concomitant]
     Active Substance: DOCETAXEL
     Route: 065
  5. AVASTIN [Suspect]
     Active Substance: BEVACIZUMAB
     Route: 065
  6. LOMOTIL (UNITED STATES) [Concomitant]
     Route: 065
  7. PRILOSEC [Concomitant]
     Active Substance: OMEPRAZOLE MAGNESIUM
  8. FLUOROURACIL. [Concomitant]
     Active Substance: FLUOROURACIL
     Route: 040
  9. MAGNESIUM SULFATE. [Concomitant]
     Active Substance: MAGNESIUM SULFATE
     Route: 065
  10. IMODIUM [Concomitant]
     Active Substance: LOPERAMIDE HYDROCHLORIDE
     Route: 065
  11. FLUOROURACIL. [Concomitant]
     Active Substance: FLUOROURACIL
     Route: 040
  12. OXALIPLATIN. [Concomitant]
     Active Substance: OXALIPLATIN
     Route: 065
  13. ARANESP [Concomitant]
     Active Substance: DARBEPOETIN ALFA
     Route: 042
  14. DECADRON [Concomitant]
     Active Substance: DEXAMETHASONE
     Route: 065
  15. COMPAZINE [Concomitant]
     Active Substance: PROCHLORPERAZINE MALEATE
     Route: 065
  16. CALCIUM GLUCONATE. [Concomitant]
     Active Substance: CALCIUM GLUCONATE
     Route: 065
  17. AVASTIN [Suspect]
     Active Substance: BEVACIZUMAB
     Route: 065
  18. LEUCOVORIN [Concomitant]
     Active Substance: LEUCOVORIN
     Route: 065
  19. FLUOROURACIL. [Concomitant]
     Active Substance: FLUOROURACIL
     Route: 042
  20. OXALIPLATIN. [Concomitant]
     Active Substance: OXALIPLATIN
     Route: 065
  21. OXALIPLATIN. [Concomitant]
     Active Substance: OXALIPLATIN
     Route: 065
  22. GEMZAR [Concomitant]
     Active Substance: GEMCITABINE HYDROCHLORIDE
  23. AVASTIN [Suspect]
     Active Substance: BEVACIZUMAB
     Route: 065
  24. OXALIPLATIN. [Concomitant]
     Active Substance: OXALIPLATIN
     Route: 065
  25. AVASTIN [Suspect]
     Active Substance: BEVACIZUMAB
     Indication: PANCREATIC CARCINOMA
     Route: 065
  26. LEUCOVORIN [Concomitant]
     Active Substance: LEUCOVORIN
     Route: 065
  27. FLUOROURACIL. [Concomitant]
     Active Substance: FLUOROURACIL
     Route: 040
  28. FLUOROURACIL. [Concomitant]
     Active Substance: FLUOROURACIL
     Route: 040
  29. KYTRIL [Concomitant]
     Active Substance: GRANISETRON HYDROCHLORIDE
     Route: 042
  30. LEUCOVORIN [Concomitant]
     Active Substance: LEUCOVORIN
     Route: 065
  31. GELCLAIR (UNITED STATES) [Concomitant]
  32. BENADRYL [Concomitant]
     Active Substance: DIPHENHYDRAMINE HYDROCHLORIDE
     Route: 065

REACTIONS (21)
  - Malaise [Unknown]
  - Fatigue [Unknown]
  - Diarrhoea [Unknown]
  - Paraesthesia [Unknown]
  - Dyspepsia [Unknown]
  - Sinusitis [Unknown]
  - Contusion [Unknown]
  - Flatulence [Unknown]
  - Death [Fatal]
  - Weight decreased [Unknown]
  - Hyperkalaemia [Unknown]
  - Dysuria [Unknown]
  - Haemorrhage [Unknown]
  - Off label use [Unknown]
  - Nausea [Unknown]
  - Abdominal pain [Unknown]
  - Abdominal distension [Unknown]
  - Mucosal inflammation [Unknown]
  - Oropharyngeal pain [Unknown]
  - Gingival pain [Unknown]
  - Decreased appetite [Unknown]

NARRATIVE: CASE EVENT DATE: 20060520
